FAERS Safety Report 8900602 (Version 4)
Quarter: 2013Q4

REPORT INFORMATION
  Report Type: Report from Study
  Country: DE (occurrence: DE)
  Receive Date: 20121109
  Receipt Date: 20131210
  Transmission Date: 20140711
  Serious: Yes (Disabling)
  Sender: FDA-Public Use
  Company Number: DE-ROCHE-1151072

PATIENT
  Age: 46 Year
  Sex: Female
  Weight: 70 kg

DRUGS (3)
  1. TRASTUZUMAB [Suspect]
     Indication: BREAST CANCER
     Route: 042
     Dates: start: 20120516
  2. DOCETAXEL [Suspect]
     Indication: BREAST CANCER
     Route: 042
  3. PLACEBO [Suspect]
     Indication: BREAST CANCER
     Dosage: LAST DOSE PRIOR TO SAE: 17/SEP/2012
     Route: 042
     Dates: start: 20120516, end: 20121015

REACTIONS (2)
  - Neurotoxicity [Recovering/Resolving]
  - Facial neuralgia [Recovering/Resolving]
